FAERS Safety Report 12457095 (Version 1)
Quarter: 2016Q2

REPORT INFORMATION
  Report Type: Spontaneous
  Country: KR (occurrence: KR)
  Receive Date: 20160610
  Receipt Date: 20160610
  Transmission Date: 20160815
  Serious: Yes (Hospitalization)
  Sender: FDA-Public Use
  Company Number: KR-ROCHE-1770965

PATIENT
  Age: 51 Year
  Sex: Female

DRUGS (4)
  1. VEMURAFENIB [Suspect]
     Active Substance: VEMURAFENIB
     Indication: MALIGNANT MELANOMA
     Route: 065
  2. COTELLIC [Suspect]
     Active Substance: COBIMETINIB
     Indication: MALIGNANT MELANOMA
     Route: 065
  3. COTELLIC [Suspect]
     Active Substance: COBIMETINIB
     Indication: METASTASES TO BONE
  4. VEMURAFENIB [Suspect]
     Active Substance: VEMURAFENIB
     Indication: METASTASES TO BONE
     Route: 065

REACTIONS (4)
  - Pneumonia [Recovering/Resolving]
  - Right ventricular failure [Recovering/Resolving]
  - Pyrexia [Unknown]
  - Rash [Unknown]
